FAERS Safety Report 8910815 (Version 4)
Quarter: 2016Q3

REPORT INFORMATION
  Report Type: Report from Study
  Country: JP (occurrence: JP)
  Receive Date: 20121115
  Receipt Date: 20160721
  Transmission Date: 20161109
  Serious: Yes (Hospitalization)
  Sender: FDA-Public Use
  Company Number: JP-009507513-1211JPN004237

PATIENT
  Age: 1 Month
  Sex: Male

DRUGS (12)
  1. DIAZOXIDE [Suspect]
     Active Substance: DIAZOXIDE
     Dosage: 7 MG, TID
     Route: 048
     Dates: start: 20110703, end: 20110712
  2. DIAZOXIDE [Suspect]
     Active Substance: DIAZOXIDE
     Dosage: 3 MG, TID
     Route: 048
     Dates: start: 20110720, end: 20110724
  3. DIAZOXIDE [Suspect]
     Active Substance: DIAZOXIDE
     Dosage: 4.3 MG, TID
     Route: 048
     Dates: start: 20110716, end: 20110719
  4. VICCILLIN [Concomitant]
     Active Substance: AMPICILLIN
     Indication: HYPOGLYCAEMIA
     Dosage: 240 MG, QD DIVIDED DOSE FREQUENCY UNKNOWN
     Route: 042
     Dates: start: 20110619, end: 20110628
  5. CALCICOL [Concomitant]
     Active Substance: CALCIUM GLUCONATE
     Indication: HYPOGLYCAEMIA
     Dosage: 10 ML, QD DIVIDED DOSE FREQUENCY UNKNOWN
     Route: 042
     Dates: start: 20110619, end: 20110626
  6. FLUCONAZOLE. [Concomitant]
     Active Substance: FLUCONAZOLE
     Indication: FUNGAL INFECTION
     Dosage: 9 MG, QD DIVIDED DOSE FREQUENCY UNKNOWN
     Route: 042
     Dates: start: 20110630, end: 20110701
  7. DOPAMINE HYDROCHLORIDE. [Concomitant]
     Active Substance: DOPAMINE HYDROCHLORIDE
     Indication: HYPOGLYCAEMIA
     Dosage: 24 MG, QD DIVIDED DOSE FREQUENCY UNKNOWN
     Route: 042
     Dates: start: 20110619, end: 20110624
  8. DOBUX [Concomitant]
     Indication: HYPOGLYCAEMIA
     Dosage: 24 MG, QD DIVIDED DOSE FREQUENCY UNKNOWN
     Route: 042
     Dates: start: 20110619, end: 20110623
  9. AMIKACIN [Concomitant]
     Active Substance: AMIKACIN
     Indication: HYPOGLYCAEMIA
     Dosage: 10 MG, QD DIVIDED DOSE FREQUENCY UNKNOWN
     Route: 042
     Dates: start: 20110619, end: 20110628
  10. DIAZOXIDE [Suspect]
     Active Substance: DIAZOXIDE
     Indication: HYPOGLYCAEMIA
     Dosage: 5.3 MG, TID
     Route: 048
     Dates: start: 20110630, end: 20110702
  11. DIAZOXIDE [Suspect]
     Active Substance: DIAZOXIDE
     Dosage: 5.7 MG, TID
     Route: 048
     Dates: start: 20110713, end: 20110715
  12. HABEKACIN [Concomitant]
     Indication: STAPHYLOCOCCAL INFECTION
     Dosage: 9 MG, QD DIVIDED DOSE FREQUENCY UNKNOWN
     Route: 042
     Dates: start: 20110630, end: 20110704

REACTIONS (7)
  - Urine output decreased [Recovered/Resolved]
  - Cryptorchism [Recovering/Resolving]
  - Oedema [Recovered/Resolved]
  - Cholestasis [Recovering/Resolving]
  - Hepatic function abnormal [Recovering/Resolving]
  - Inguinal hernia [Recovering/Resolving]
  - Renal impairment [Recovered/Resolved]

NARRATIVE: CASE EVENT DATE: 20110705
